FAERS Safety Report 5514437-0 (Version None)
Quarter: 2007Q4

REPORT INFORMATION
  Report Type: 
  Country: None (occurrence: None)
  Receive Date: 20071113
  Receipt Date: 20070521
  Transmission Date: 20080405
  Serious: No
  Sender: FDA-Public Use
  Company Number: A0652146A

PATIENT
  Age: 49 Year
  Sex: Male

DRUGS (7)
  1. COREG [Suspect]
     Indication: CARDIOMYOPATHY
     Dosage: 12.5MG TWICE PER DAY
     Route: 048
     Dates: start: 20000101, end: 20010101
  2. TRICOR [Concomitant]
  3. DIOVAN [Concomitant]
  4. LIPITOR [Concomitant]
  5. K-DUR 10 [Concomitant]
  6. VITAMIN CAP [Concomitant]
  7. NEURONTIN [Concomitant]

REACTIONS (1)
  - SLUGGISHNESS [None]
